FAERS Safety Report 24979765 (Version 1)
Quarter: 2025Q1

REPORT INFORMATION
  Report Type: Spontaneous
  Country: AR (occurrence: AR)
  Receive Date: 20250218
  Receipt Date: 20250218
  Transmission Date: 20250409
  Serious: Yes (Hospitalization, Other)
  Sender: ALKEM
  Company Number: AR-ALKEM LABORATORIES LIMITED-AR-ALKEM-2025-01449

PATIENT
  Age: 14 Year
  Sex: Female

DRUGS (5)
  1. MYCOPHENOLATE MOFETIL [Suspect]
     Active Substance: MYCOPHENOLATE MOFETIL
     Indication: Immunosuppressant drug therapy
     Route: 065
  2. TACROLIMUS [Suspect]
     Active Substance: TACROLIMUS
     Indication: Immunosuppressant drug therapy
     Route: 065
  3. METHYLPREDNISOLONE [Suspect]
     Active Substance: METHYLPREDNISOLONE
     Indication: Immunosuppressant drug therapy
     Route: 042
  4. BASILIXIMAB [Suspect]
     Active Substance: BASILIXIMAB
     Indication: Drug therapy
     Route: 065
  5. MEPREDNISONE [Suspect]
     Active Substance: MEPREDNISONE
     Indication: Immunosuppressant drug therapy
     Route: 065

REACTIONS (7)
  - Hepatic neoplasm [Recovering/Resolving]
  - Cerebellar tumour [Recovering/Resolving]
  - Splenic neoplasm malignancy unspecified [Recovering/Resolving]
  - Urinary tract infection [Unknown]
  - Smooth muscle cell neoplasm [Recovering/Resolving]
  - Lung neoplasm [Recovering/Resolving]
  - Epstein-Barr virus infection [Unknown]
